FAERS Safety Report 11124809 (Version 1)
Quarter: 2015Q2

REPORT INFORMATION
  Report Type: Spontaneous
  Country: FR (occurrence: None)
  Receive Date: 20150518
  Receipt Date: 20150518
  Transmission Date: 20150821
  Serious: Yes (Hospitalization)
  Sender: FDA-Public Use
  Company Number: ABR_02204_2015

PATIENT
  Age: 26 Year
  Sex: Male

DRUGS (2)
  1. LAMOTRIGINE (LAMOTRIGINE) 200 MG [Suspect]
     Active Substance: LAMOTRIGINE
     Indication: TEMPORAL LOBE EPILEPSY
     Dosage: (40 DF 1X ORAL) ?DURATION: (1 DAY)
     Route: 048
  2. LACOSAMIDE (LACOSAMIDE) 200 MG [Suspect]
     Active Substance: LACOSAMIDE
     Indication: TEMPORAL LOBE EPILEPSY
     Dosage: (30 DF 1X ORAL)?DURATION: (1 DAY)
     Route: 048

REACTIONS (9)
  - Agitation [None]
  - Status epilepticus [None]
  - Wound [None]
  - Blood creatine phosphokinase increased [None]
  - Suicide attempt [None]
  - Generalised tonic-clonic seizure [None]
  - Coma [None]
  - Head banging [None]
  - Intentional overdose [None]
